FAERS Safety Report 15718888 (Version 1)
Quarter: 2018Q4

REPORT INFORMATION
  Report Type: Spontaneous
  Country: JO (occurrence: JO)
  Receive Date: 20181213
  Receipt Date: 20181213
  Transmission Date: 20190205
  Serious: Yes (Hospitalization)
  Sender: FDA-Public Use
  Company Number: JO-IGSA-SR10007440

PATIENT
  Age: 19 Year
  Sex: Male

DRUGS (2)
  1. KOATE -DVI [Suspect]
     Active Substance: ANTIHEMOPHILIC FACTOR HUMAN
     Indication: FACTOR VIII DEFICIENCY
     Dosage: 1000 IU, SINGLE
     Route: 042
     Dates: start: 20180819, end: 20180819
  2. KOATE -DVI [Suspect]
     Active Substance: ANTIHEMOPHILIC FACTOR HUMAN
     Dosage: 1000 IU, SINGLE
     Route: 042
     Dates: start: 20180814, end: 20180814

REACTIONS (2)
  - Haemorrhage [Unknown]
  - Pain [Unknown]

NARRATIVE: CASE EVENT DATE: 201808
